FAERS Safety Report 9805546 (Version 3)
Quarter: 2014Q1

REPORT INFORMATION
  Report Type: Spontaneous
  Country: US (occurrence: US)
  Receive Date: 20140109
  Receipt Date: 20140117
  Transmission Date: 20141002
  Serious: Yes (Hospitalization)
  Sender: FDA-Public Use
  Company Number: US-B.I. PHARMACEUTICALS,INC./RIDGEFIELD-2012-BP-11007BP

PATIENT
  Age: 89 Year
  Sex: Female
  Weight: 74.84 kg

DRUGS (15)
  1. PRADAXA [Suspect]
     Indication: ATRIAL FIBRILLATION
     Dosage: 300 MG
     Dates: start: 20110610, end: 20110901
  2. PRADAXA [Suspect]
     Indication: ANTICOAGULANT THERAPY
  3. LIPITOR [Concomitant]
     Dosage: 20 MG
     Dates: start: 200410, end: 2012
  4. ISOSORBIDE [Concomitant]
     Dosage: 30 MG
     Dates: start: 200410, end: 2012
  5. LISINOPRIL [Concomitant]
     Dosage: 10 MG
     Dates: start: 200410, end: 2012
  6. CHLORTHALIDONE [Concomitant]
     Dosage: 25 MG
     Dates: start: 200410, end: 2012
  7. AMIODARONE [Concomitant]
     Dosage: 100 MG
     Dates: start: 200410, end: 2012
  8. AMILODPINE [Concomitant]
     Dosage: 10 MG
     Dates: start: 200410, end: 2012
  9. TRAMADOL [Concomitant]
  10. FLECTOR [Concomitant]
  11. LUNESTA [Concomitant]
  12. HYDROMORPHONE [Concomitant]
  13. KETOROLAC [Concomitant]
  14. ASPIRIN [Concomitant]
  15. ULTRAM [Concomitant]

REACTIONS (2)
  - Lower gastrointestinal haemorrhage [Recovered/Resolved]
  - Haemorrhagic anaemia [Unknown]
